FAERS Safety Report 24006559 (Version 2)
Quarter: 2024Q3

REPORT INFORMATION
  Report Type: Spontaneous
  Country: CH (occurrence: CH)
  Receive Date: 20240624
  Receipt Date: 20240704
  Transmission Date: 20241017
  Serious: Yes (Other)
  Sender: NOVARTIS
  Company Number: CH-002147023-NVSC2024CH110570

PATIENT
  Age: 12 Year
  Sex: Female

DRUGS (2)
  1. MEKINIST [Suspect]
     Active Substance: TRAMETINIB DIMETHYL SULFOXIDE
     Indication: Neurofibromatosis
     Dosage: 1 MG, QD
     Route: 048
     Dates: start: 202210, end: 202309
  2. MEKINIST [Suspect]
     Active Substance: TRAMETINIB DIMETHYL SULFOXIDE
     Dosage: 0.5 MG, QD
     Route: 048
     Dates: start: 202309

REACTIONS (7)
  - Gastrointestinal disorder [Recovered/Resolved]
  - Abdominal pain upper [Recovered/Resolved]
  - Diarrhoea [Recovered/Resolved]
  - Skin disorder [Recovering/Resolving]
  - Paronychia [Recovering/Resolving]
  - Haemorrhage [Recovering/Resolving]
  - Off label use [Unknown]
